FAERS Safety Report 6581977-5 (Version None)
Quarter: 2010Q1

REPORT INFORMATION
  Report Type: 
  Country: None (occurrence: None)
  Receive Date: 20100215
  Receipt Date: 20100205
  Transmission Date: 20100710
  Serious: Yes (Hospitalization)
  Sender: FDA-Public Use
  Company Number: IN-ABBOTT-10P-078-0624603-00

PATIENT
  Age: 62 Year
  Sex: Female

DRUGS (3)
  1. CALCITRIOL [Suspect]
     Indication: DRUG USE FOR UNKNOWN INDICATION
  2. CALCIUM [Concomitant]
     Indication: DRUG USE FOR UNKNOWN INDICATION
  3. NSAID'S [Concomitant]
     Indication: DRUG USE FOR UNKNOWN INDICATION

REACTIONS (1)
  - HYPERCALCAEMIA [None]
